FAERS Safety Report 12606797 (Version 2)
Quarter: 2016Q3

REPORT INFORMATION
  Report Type: Report from Study
  Country: DE (occurrence: DE)
  Receive Date: 20160729
  Receipt Date: 20160808
  Transmission Date: 20161109
  Serious: Yes (Death, Hospitalization)
  Sender: FDA-Public Use
  Company Number: DE-ABBVIE-16K-062-1687774-00

PATIENT
  Age: 81 Year
  Sex: Male

DRUGS (1)
  1. DUODOPA [Suspect]
     Active Substance: CARBIDOPA\LEVODOPA
     Indication: PARKINSON^S DISEASE
     Dosage: IN ADJUSTMENT PHASE/CLINIC DECIDED ON MD 7.0 ML; CRD 2.5 ML/H; CRN 1.0 ML; ED 5.0 ML
     Route: 050
     Dates: start: 20160722

REACTIONS (3)
  - Dysphagia [Fatal]
  - Hospitalisation [Unknown]
  - Aspiration [Fatal]

NARRATIVE: CASE EVENT DATE: 201607
